FAERS Safety Report 9563570 (Version 2)
Quarter: 2014Q3

REPORT INFORMATION
  Report Type: Spontaneous
  Country: FR (occurrence: None)
  Receive Date: 20130926
  Receipt Date: 20140909
  Transmission Date: 20150326
  Serious: Yes (Hospitalization)
  Sender: FDA-Public Use
  Company Number: IMP_06825_2013

PATIENT
  Age: 28 Year
  Sex: Male

DRUGS (1)
  1. VALPROIC ACID. [Suspect]
     Active Substance: VALPROIC ACID
     Indication: EPILEPSY
     Dosage: DF, 750 MG, ENTERNAL

REACTIONS (7)
  - Status epilepticus [None]
  - Head injury [None]
  - Generalised tonic-clonic seizure [None]
  - Extradural haematoma [None]
  - Loss of consciousness [None]
  - Fall [None]
  - Hyperammonaemic encephalopathy [None]
